FAERS Safety Report 7715447-5 (Version None)
Quarter: 2011Q3

REPORT INFORMATION
  Report Type: 
  Country: None (occurrence: None)
  Receive Date: 20110829
  Receipt Date: 20110816
  Transmission Date: 20111222
  Serious: Yes (Other)
  Sender: FDA-Public Use
  Company Number: US-CELGENEUS-163-21880-11071032

PATIENT
  Sex: Female
  Weight: 47.627 kg

DRUGS (9)
  1. METHIMAZOLE [Concomitant]
     Route: 065
  2. PROCRIT [Concomitant]
     Route: 065
  3. SODIUM BICARBONATE [Concomitant]
     Route: 065
  4. DIGOXIN [Concomitant]
     Route: 065
  5. REVLIMID [Suspect]
     Indication: MULTIPLE MYELOMA
     Dosage: 15 MILLIGRAM
     Route: 048
     Dates: start: 20100825
  6. SENOKOT [Concomitant]
     Route: 065
  7. ZOFRAN [Concomitant]
     Route: 065
  8. REVLIMID [Suspect]
     Dosage: 10 MILLIGRAM
     Route: 048
     Dates: start: 20110501
  9. REVLIMID [Suspect]
     Dosage: 5 MILLIGRAM
     Route: 048
     Dates: start: 20110601

REACTIONS (4)
  - HYPERTHYROIDISM [None]
  - ATRIAL FIBRILLATION [None]
  - HYPOTHYROIDISM [None]
  - RASH [None]
